FAERS Safety Report 18180563 (Version 3)
Quarter: 2022Q1

REPORT INFORMATION
  Report Type: Report from Study
  Country: US (occurrence: US)
  Receive Date: 20200821
  Receipt Date: 20220307
  Transmission Date: 20220423
  Serious: No
  Sender: FDA-Public Use
  Company Number: US-ACADIA PHARMACEUTICALS INC.-ACA-2020-PIM-002509

PATIENT
  Age: 72 Year
  Sex: Female

DRUGS (18)
  1. NUPLAZID [Suspect]
     Active Substance: PIMAVANSERIN TARTRATE
     Indication: Parkinson^s disease psychosis
     Dosage: 34 MILLIGRAM, QD
     Route: 048
  2. NUPLAZID [Suspect]
     Active Substance: PIMAVANSERIN TARTRATE
     Indication: Hallucination
     Dosage: 34 MILLIGRAM, TID
     Route: 048
     Dates: start: 20211203
  3. NUPLAZID [Suspect]
     Active Substance: PIMAVANSERIN TARTRATE
     Indication: Delusion
  4. FOSAMAX [Concomitant]
     Active Substance: ALENDRONATE SODIUM
     Dosage: 70 MILLIGRAM BEFORE MEAL, TAKE IN MORNING WITH WATER ON EMPTY STOMACH
     Route: 048
     Dates: start: 20150916
  5. NORVASC [Concomitant]
     Active Substance: AMLODIPINE BESYLATE
     Dosage: 5 MILLIGRAM, QD
     Route: 048
     Dates: start: 20170911, end: 20210224
  6. SINEMET [Concomitant]
     Active Substance: CARBIDOPA\LEVODOPA
     Indication: Parkinson^s disease
     Dosage: 1 TAB (25-250 MG) 5 TIMES DAILY
     Route: 048
     Dates: start: 20151022
  7. SINEMET [Concomitant]
     Active Substance: CARBIDOPA\LEVODOPA
     Dosage: 1 TAB (50-200 MG) AT BEDTIME
     Route: 048
  8. CLONIDINE [Concomitant]
     Active Substance: CLONIDINE
     Indication: Product used for unknown indication
  9. COMTAN [Concomitant]
     Active Substance: ENTACAPONE
     Indication: Parkinson^s disease
     Dosage: 200 MILLIGRAM 5 TIMES DAILY
     Route: 048
     Dates: start: 20151009
  10. REQUIP [Concomitant]
     Active Substance: ROPINIROLE HYDROCHLORIDE
     Dosage: 5 MG TAB; TAKE 1 TAB AT 6 AM, NOON AND 6 PM AND 1/2 TAB AT 9 AM, 3 PM AND 9 PM
     Dates: start: 20180816
  11. ZOCOR [Concomitant]
     Active Substance: SIMVASTATIN
     Dosage: 20 MILLIGRAM AT BEDTIME
     Route: 048
     Dates: start: 20160205
  12. SALICYLIC ACID\TRIAMCINOLONE ACETONIDE [Concomitant]
     Active Substance: SALICYLIC ACID\TRIAMCINOLONE ACETONIDE
     Dosage: 0.1% CREAM APPLY TO AFFECTED AREA 2 TIMES DAILY (BILATERAL ARMS)
     Dates: start: 20200515
  13. BUFFERIN LOW-DOSE [Concomitant]
     Dosage: 81 MILLIGRAM, QD
     Route: 048
     Dates: start: 20200623
  14. SYMMETREL [Concomitant]
     Active Substance: AMANTADINE HYDROCHLORIDE
     Indication: Parkinson^s disease
     Dosage: 100 MILLIGRAM, BID
     Route: 048
     Dates: start: 20151022
  15. KLONOPIN [Concomitant]
     Active Substance: CLONAZEPAM
     Indication: Rapid eye movement sleep behaviour disorder
     Dosage: 1 MG TAB; TAKE 1.5 TABS AT BEDTIME
     Route: 048
     Dates: start: 20180726
  16. LOTRISONE [Concomitant]
     Active Substance: BETAMETHASONE DIPROPIONATE\CLOTRIMAZOLE
     Dosage: 1-0.05% CREAM: APPLY TO AFFECTED AREA BID (APPLY TO BILATERAL LOWER LEGS AND FEET)
     Route: 061
     Dates: start: 20190806, end: 20211101
  17. ALLEGRA [Concomitant]
     Active Substance: FEXOFENADINE HYDROCHLORIDE
     Dosage: 180 MILLIGRAM, BID
     Route: 048
  18. CALCIUM CARBONATE\VITAMIN D [Concomitant]
     Active Substance: CALCIUM CARBONATE\VITAMIN D
     Dosage: TAKE 1 TAB (600-400 MG) 2 TIMES DAILY
     Route: 048
     Dates: end: 20210211

REACTIONS (5)
  - Therapeutic product effect incomplete [Unknown]
  - Paranoia [Recovered/Resolved]
  - Psychotic disorder [Not Recovered/Not Resolved]
  - Hallucination [Recovered/Resolved]
  - Prescribed overdose [Not Recovered/Not Resolved]

NARRATIVE: CASE EVENT DATE: 20200719
